FAERS Safety Report 7721242-3 (Version None)
Quarter: 2011Q3

REPORT INFORMATION
  Report Type: 
  Country: None (occurrence: None)
  Receive Date: 20110831
  Receipt Date: 20110822
  Transmission Date: 20111222
  Serious: Yes (Other)
  Sender: FDA-Public Use
  Company Number: US-SHIRE-ALL1-2011-02297

PATIENT
  Sex: Female
  Weight: 56.689 kg

DRUGS (1)
  1. ADDERALL XR 10 [Suspect]
     Indication: PRODUCT USED FOR UNKNOWN INDICATION
     Dosage: 60 MG(2X30 MG IN THE MORNING), 1X/DAY:QD
     Route: 048
     Dates: start: 20050101, end: 20100401

REACTIONS (10)
  - SLEEP DISORDER [None]
  - INTERVERTEBRAL DISC PROTRUSION [None]
  - HYPOAESTHESIA [None]
  - STRESS AT WORK [None]
  - ANXIETY [None]
  - OVERDOSE [None]
  - MENOPAUSE [None]
  - ARTHRITIS [None]
  - GRAND MAL CONVULSION [None]
  - DEPRESSION [None]
